FAERS Safety Report 5402054-2 (Version None)
Quarter: 2007Q3

REPORT INFORMATION
  Report Type: 
  Country: None (occurrence: None)
  Receive Date: 20070727
  Receipt Date: 20070717
  Transmission Date: 20080115
  Serious: Yes (Hospitalization)
  Sender: FDA-Public Use
  Company Number: 39173

PATIENT
  Age: 32 Year
  Sex: Male

DRUGS (1)
  1. CLINDAMYCIN PHOSPHATE [Suspect]
     Indication: FURUNCLE
     Dosage: 300 MG/DAILY

REACTIONS (3)
  - DRUG LEVEL BELOW THERAPEUTIC [None]
  - DYSKINESIA [None]
  - FURUNCLE [None]
